FAERS Safety Report 20454908 (Version 1)
Quarter: 2022Q1

REPORT INFORMATION
  Report Type: Spontaneous
  Country: US (occurrence: US)
  Receive Date: 20220210
  Receipt Date: 20220210
  Transmission Date: 20220424
  Serious: No
  Sender: FDA-Public Use
  Company Number: US-GW PHARMA-202202USGW00571

PATIENT
  Sex: Female

DRUGS (1)
  1. EPIDIOLEX [Suspect]
     Active Substance: CANNABIDIOL
     Indication: Epilepsy
     Dosage: 650 MILLIGRAM, QD, 250 MG EVERY MORNING AND 400 MG EVERY EVENING (FIRST SHIPPED ON 12 FEB 2019)
     Route: 048
     Dates: start: 201902

REACTIONS (1)
  - Seizure [Unknown]
